FAERS Safety Report 24378110 (Version 1)
Quarter: 2024Q3

REPORT INFORMATION
  Report Type: Spontaneous
  Country: RS (occurrence: RS)
  Receive Date: 20240930
  Receipt Date: 20240930
  Transmission Date: 20241017
  Serious: Yes (Other)
  Sender: PFIZER
  Company Number: RS-PFIZER INC-PV202300160548

PATIENT
  Age: 28 Year
  Sex: Female

DRUGS (2)
  1. TALZENNA [Suspect]
     Active Substance: TALAZOPARIB TOSYLATE
     Dosage: 1 MG, 1X/DAY
     Route: 048
     Dates: start: 20230511
  2. TALZENNA [Suspect]
     Active Substance: TALAZOPARIB TOSYLATE
     Dosage: 0.75 MG, 1X/DAY
     Dates: end: 20240822

REACTIONS (4)
  - Anaemia [Recovered/Resolved]
  - Nervous system disorder [Unknown]
  - Fatigue [Recovering/Resolving]
  - General physical health deterioration [Unknown]
